FAERS Safety Report 24302038 (Version 2)
Quarter: 2024Q3

REPORT INFORMATION
  Report Type: Report from Study
  Country: ES (occurrence: ES)
  Receive Date: 20240910
  Receipt Date: 20240917
  Transmission Date: 20241017
  Serious: Yes (Other)
  Sender: ABBVIE
  Company Number: ES-ABBVIE-5914052

PATIENT
  Age: 79 Year
  Sex: Female
  Weight: 55 kg

DRUGS (5)
  1. HUMIRA [Suspect]
     Active Substance: ADALIMUMAB
     Indication: Colitis ulcerative
     Route: 058
     Dates: start: 20160701
  2. OMALIZUMAB [Concomitant]
     Active Substance: OMALIZUMAB
     Indication: Urticaria chronic
     Route: 058
     Dates: start: 20210309
  3. MESALAMINE [Concomitant]
     Active Substance: MESALAMINE
     Indication: Colitis ulcerative
     Route: 048
     Dates: start: 20220127
  4. SINERGINA [Concomitant]
     Indication: Epilepsy
     Route: 048
     Dates: start: 19840101
  5. PLENUR [Concomitant]
     Indication: Bipolar I disorder
     Route: 048
     Dates: start: 20080101

REACTIONS (2)
  - Breast cyst [Recovered/Resolved]
  - Breast hyperplasia [Recovered/Resolved]

NARRATIVE: CASE EVENT DATE: 20230401
